FAERS Safety Report 7138737-6 (Version None)
Quarter: 2010Q4

REPORT INFORMATION
  Report Type: 
  Country: None (occurrence: None)
  Receive Date: 20101206
  Receipt Date: 20101130
  Transmission Date: 20110411
  Serious: Yes (Other)
  Sender: FDA-Public Use
  Company Number: US-PFIZER INC-2010160959

PATIENT
  Sex: Female
  Weight: 74.83 kg

DRUGS (3)
  1. TOVIAZ [Suspect]
     Indication: URINARY INCONTINENCE
     Dosage: UNK
     Route: 048
     Dates: start: 20100901, end: 20100101
  2. QUINAPRIL [Concomitant]
     Indication: HEART RATE IRREGULAR
     Dosage: UNK
  3. ACETYLSALICYLIC ACID [Concomitant]
     Indication: HYPERTENSION
     Dosage: UNK

REACTIONS (2)
  - BRADYPHRENIA [None]
  - MENTAL IMPAIRMENT [None]
